FAERS Safety Report 9069014 (Version 1)
Quarter: 2013Q1

REPORT INFORMATION
  Report Type: Spontaneous
  Country: US (occurrence: None)
  Receive Date: 20130213
  Receipt Date: 20130213
  Transmission Date: 20140127
  Serious: Yes (Hospitalization)
  Sender: FDA-Public Use
  Company Number: None

PATIENT
  Age: 85 Year
  Sex: Male
  Weight: 50 kg

DRUGS (1)
  1. CLOZAPINE (IVAX) [Suspect]
     Indication: DEMENTIA
     Route: 048
     Dates: start: 20130101, end: 20130125

REACTIONS (4)
  - Leukopenia [None]
  - Haemoglobin decreased [None]
  - Urinary tract infection [None]
  - Confusional state [None]
